FAERS Safety Report 8281612-4 (Version None)
Quarter: 2012Q2

REPORT INFORMATION
  Report Type: 
  Country: None (occurrence: None)
  Receive Date: 20120413
  Receipt Date: 20120402
  Transmission Date: 20120825
  Serious: Yes (Hospitalization, Other)
  Sender: FDA-Public Use
  Company Number: US-JNJFOC-20120210077

PATIENT
  Sex: Female
  Weight: 86.18 kg

DRUGS (9)
  1. VESICARE [Concomitant]
     Indication: HYPERTONIC BLADDER
     Route: 048
     Dates: start: 20100101
  2. REMICADE [Suspect]
     Indication: PSORIATIC ARTHROPATHY
     Route: 042
     Dates: start: 20111208, end: 20111201
  3. PRISTIQ [Concomitant]
     Indication: DEPRESSION
     Route: 048
  4. MESCALINE [Concomitant]
     Indication: COLITIS
     Route: 048
  5. METHOTREXATE [Concomitant]
     Indication: PSORIATIC ARTHROPATHY
     Route: 058
  6. METFORMIN HCL [Concomitant]
     Indication: TYPE 2 DIABETES MELLITUS
     Route: 048
     Dates: start: 20110801
  7. VITAMIN D [Concomitant]
     Indication: OSTEOPENIA
     Dosage: DOSE; 50000 UNITS
     Route: 048
     Dates: start: 20110101
  8. CYCLOSPORINE [Concomitant]
     Route: 048
     Dates: start: 20110101
  9. LISINOPRIL [Concomitant]
     Indication: BLOOD PRESSURE
     Route: 048
     Dates: start: 20110801

REACTIONS (16)
  - OEDEMA PERIPHERAL [None]
  - SWELLING FACE [None]
  - RESPIRATORY DISTRESS [None]
  - URTICARIA [None]
  - ARTHRALGIA [None]
  - PERICARDIAL EFFUSION [None]
  - OROPHARYNGEAL PAIN [None]
  - PYREXIA [None]
  - PULMONARY OEDEMA [None]
  - COUGH [None]
  - RASH [None]
  - LIP SWELLING [None]
  - DYSPHAGIA [None]
  - WHEEZING [None]
  - DYSPNOEA [None]
  - PRURITUS [None]
